FAERS Safety Report 9462861 (Version 1)
Quarter: 2013Q3

REPORT INFORMATION
  Report Type: Spontaneous
  Country: FR (occurrence: None)
  Receive Date: 20130814
  Receipt Date: 20130814
  Transmission Date: 20140515
  Serious: Yes (Hospitalization)
  Sender: FDA-Public Use
  Company Number: NGX_01570_2013

PATIENT
  Age: 65 Year
  Sex: Male

DRUGS (2)
  1. QUTENZA [Suspect]
     Indication: NEURALGIA
     Dosage: (3 DF, [PATCH] TOPICAL)
     Route: 061
     Dates: start: 20130117, end: 20130117
  2. EMLA [Concomitant]

REACTIONS (7)
  - Adverse drug reaction [None]
  - Application site pain [None]
  - Application site erythema [None]
  - Blood pressure systolic increased [None]
  - Application site pain [None]
  - Drug ineffective [None]
  - Joint arthroplasty [None]
